FAERS Safety Report 9513721 (Version 1)
Quarter: 2013Q1

REPORT INFORMATION
  Report Type: Spontaneous
  Country: US (occurrence: None)
  Receive Date: 20130305
  Receipt Date: 20130305
  Transmission Date: 20140127
  Serious: Yes (Other)
  Sender: FDA-Public Use
  Company Number: 163-21880-12102131

PATIENT
  Age: 68 Year
  Sex: Female
  Weight: 58.7 kg

DRUGS (2)
  1. REVLIMID [Suspect]
     Indication: PLASMA CELL MYELOMA
     Dosage: 5 MG, QOD X 28 DAYS, PO
     Route: 048
     Dates: start: 20120913
  2. PNEUMONIA SHOT (UNKNOWN) [Concomitant]

REACTIONS (3)
  - Hypersensitivity [None]
  - Pyrexia [None]
  - Malaise [None]
